FAERS Safety Report 10018935 (Version 2)
Quarter: 2014Q2

REPORT INFORMATION
  Report Type: Spontaneous
  Country: US (occurrence: US)
  Receive Date: 20140318
  Receipt Date: 20140422
  Transmission Date: 20141212
  Serious: Yes (Hospitalization)
  Sender: FDA-Public Use
  Company Number: US-GLAXOSMITHKLINE-A1064343A

PATIENT
  Age: 74 Year
  Sex: Male

DRUGS (8)
  1. ADVAIR [Suspect]
     Indication: CHRONIC OBSTRUCTIVE PULMONARY DISEASE
     Dosage: 1PUFF TWICE PER DAY
     Route: 055
  2. PRAVASTATIN [Concomitant]
  3. OMEPRAZOLE [Concomitant]
  4. AZITHROMYCIN [Concomitant]
  5. FENOFIBRATE [Concomitant]
  6. DILTIAZEM [Concomitant]
  7. SPIRIVA [Concomitant]
  8. NOVOLOG INSULIN [Concomitant]

REACTIONS (3)
  - Intestinal obstruction [Recovered/Resolved]
  - Renal failure [Not Recovered/Not Resolved]
  - Respiratory failure [Not Recovered/Not Resolved]
